FAERS Safety Report 9201272 (Version 2)
Quarter: 2013Q4

REPORT INFORMATION
  Report Type: Spontaneous
  Country: BE (occurrence: BE)
  Receive Date: 20130401
  Receipt Date: 20131016
  Transmission Date: 20140711
  Serious: Yes (Hospitalization, Disabling, Other)
  Sender: FDA-Public Use
  Company Number: PHHY2013BE030629

PATIENT
  Age: 54 Year
  Sex: Female

DRUGS (14)
  1. ACLASTA [Suspect]
     Indication: OSTEOPOROSIS
     Dosage: 5 MG, (ONCE YEARLY)
     Route: 042
     Dates: start: 20120210
  2. ACLASTA [Suspect]
     Dosage: 5 MG, (ONCE YEARLY)
     Route: 042
     Dates: start: 20121217
  3. GAMBARAN//NABUMETONE [Concomitant]
  4. ZALDIAR [Concomitant]
  5. EPSIPAM [Concomitant]
  6. ASAFLOW [Concomitant]
     Dosage: 80 MG, UNK
  7. DIOVANE [Concomitant]
     Dosage: 80 MG, UNK
  8. EMCONCOR [Concomitant]
  9. LIPITOR [Concomitant]
     Dosage: 40 MG, UNK
  10. LORAMET [Concomitant]
     Dosage: 10 MG, UNK
  11. PANTOPRAZOLE [Concomitant]
     Dosage: 40 MG, UNK
  12. SIPRALEXA [Concomitant]
     Dosage: 10 MG, UNK
  13. CALCIUM CARBONATE [Concomitant]
     Dosage: 1 G, UNK
  14. D-CURE [Concomitant]
     Dosage: ONCE MONTHLY

REACTIONS (6)
  - Osteonecrosis [Recovered/Resolved with Sequelae]
  - Arthralgia [Unknown]
  - Osteoarthritis [Unknown]
  - Osteonecrosis of jaw [Unknown]
  - Systemic lupus erythematosus rash [Unknown]
  - Inappropriate schedule of drug administration [Unknown]
